FAERS Safety Report 13284485 (Version 1)
Quarter: 2017Q1

REPORT INFORMATION
  Report Type: Spontaneous
  Country: US (occurrence: US)
  Receive Date: 20170301
  Receipt Date: 20170301
  Transmission Date: 20170428
  Serious: Yes (Other)
  Sender: FDA-Public Use
  Company Number: US-ENDO PHARMACEUTICALS INC-2017-000932

PATIENT
  Sex: Male

DRUGS (1)
  1. VANTAS [Suspect]
     Active Substance: HISTRELIN ACETATE
     Indication: SMALL CELL CARCINOMA
     Dosage: 50 MG IMPLANTED TO UNKNOWN AREA
     Route: 065
     Dates: start: 201308

REACTIONS (4)
  - Disease progression [Unknown]
  - Off label use [Unknown]
  - Drug prescribing error [Unknown]
  - Incorrect drug administration duration [Unknown]

NARRATIVE: CASE EVENT DATE: 2013
